FAERS Safety Report 8247400-X (Version None)
Quarter: 2012Q1

REPORT INFORMATION
  Report Type: 
  Country: None (occurrence: None)
  Receive Date: 20120330
  Receipt Date: 20120322
  Transmission Date: 20120608
  Serious: Yes (Hospitalization)
  Sender: FDA-Public Use
  Company Number: US-PFIZER INC-2012073994

PATIENT
  Sex: Female
  Weight: 58.503 kg

DRUGS (8)
  1. VICODIN [Concomitant]
     Indication: PAIN
     Dosage: 5/500 MG 1 TABLET Q4H PRN
     Route: 048
     Dates: start: 20120207
  2. PROAIR HFA [Concomitant]
     Indication: ASTHMA
     Dosage: 1-2 PUFFS, AS NEEDED
     Route: 055
     Dates: start: 20091207
  3. COMPAZINE [Concomitant]
     Indication: NAUSEA
     Dosage: 5-10 MG Q6H PRN
     Route: 048
     Dates: start: 20120306
  4. IMODIUM [Concomitant]
     Indication: DIARRHOEA
     Dosage: 1 TABLET AFTER EACH LOOSE STOOL AS NEEDED
     Route: 048
     Dates: start: 20120306
  5. NERATINIB [Suspect]
     Indication: BREAST CANCER
     Dosage: 160 MG, 1X/DAY
     Route: 048
     Dates: start: 20120306
  6. SINGULAIR [Concomitant]
     Indication: ASTHMA
     Dosage: 1 TABLET DAILY PRN
     Route: 048
     Dates: start: 20091207
  7. ONDANSETRON [Concomitant]
     Indication: NAUSEA
     Dosage: 4 MG, Q4H AS NEEDED
     Route: 048
     Dates: start: 20120310
  8. PACLITAXEL [Suspect]
     Indication: BREAST CANCER
     Dosage: 80 MG/M2, WEEKLY
     Route: 042
     Dates: start: 20120306

REACTIONS (1)
  - GASTROENTERITIS [None]
